FAERS Safety Report 6631330-0 (Version None)
Quarter: 2010Q1

REPORT INFORMATION
  Report Type: 
  Country: None (occurrence: None)
  Receive Date: 20100311
  Receipt Date: 20100311
  Transmission Date: 20100710
  Serious: Yes (Life-Threatening, Hospitalization)
  Sender: FDA-Public Use
  Company Number: None

PATIENT
  Age: 63 Year
  Sex: Female
  Weight: 56.6996 kg

DRUGS (1)
  1. SAVELLA [Suspect]
     Indication: FIBROMYALGIA
     Dosage: 1 TABLET TWICE DAILY
     Dates: start: 20090514, end: 20100114

REACTIONS (13)
  - CHEST PAIN [None]
  - CONSTIPATION [None]
  - DECREASED APPETITE [None]
  - DEPRESSION [None]
  - DIZZINESS [None]
  - DYSPHAGIA [None]
  - FATIGUE [None]
  - HEADACHE [None]
  - HEART RATE IRREGULAR [None]
  - HYPERHIDROSIS [None]
  - HYPERTENSION [None]
  - NAUSEA [None]
  - VENTRICULAR TACHYCARDIA [None]
